FAERS Safety Report 7741318-4 (Version None)
Quarter: 2011Q3

REPORT INFORMATION
  Report Type: 
  Country: None (occurrence: None)
  Receive Date: 20110909
  Receipt Date: 20110830
  Transmission Date: 20111222
  Serious: Yes (Hospitalization)
  Sender: FDA-Public Use
  Company Number: DE-UCBSA-009865

PATIENT
  Sex: Male

DRUGS (2)
  1. VIMPAT [Suspect]
     Dosage: UNKNOWN REDUCED DOSE
     Dates: start: 20100101
  2. VIMPAT [Suspect]
     Indication: EPILEPSY
     Dosage: UNKNOWN DOSE

REACTIONS (1)
  - CONVULSION [None]
